FAERS Safety Report 5230536-5 (Version None)
Quarter: 2007Q1

REPORT INFORMATION
  Report Type: 
  Country: None (occurrence: None)
  Receive Date: 20070206
  Receipt Date: 20070202
  Transmission Date: 20070707
  Serious: Yes (Congenital Anomaly)
  Sender: FDA-Public Use
  Company Number: US-GLAXOSMITHKLINE-A0638221B

PATIENT
  Sex: Female
  Weight: 1.7 kg

DRUGS (2)
  1. COMBIVIR [Suspect]
     Dosage: 2TABS PER DAY
  2. VIRACEPT [Concomitant]
     Dosage: 2500MG PER DAY

REACTIONS (3)
  - DRUG EXPOSURE DURING PREGNANCY [None]
  - PATENT DUCTUS ARTERIOSUS [None]
  - PREMATURE BABY [None]
